FAERS Safety Report 12422141 (Version 3)
Quarter: 2016Q4

REPORT INFORMATION
  Report Type: Spontaneous
  Country: US (occurrence: US)
  Receive Date: 20160531
  Receipt Date: 20161129
  Transmission Date: 20170207
  Serious: No
  Sender: FDA-Public Use
  Company Number: PHEH2016US013375

PATIENT
  Sex: Male
  Weight: 88.6 kg

DRUGS (1)
  1. VOTRIENT [Suspect]
     Active Substance: PAZOPANIB HYDROCHLORIDE
     Indication: RENAL CELL CARCINOMA
     Dosage: 3 DF, QD
     Route: 048
     Dates: start: 20160428

REACTIONS (4)
  - Dry skin [Recovered/Resolved]
  - Piloerection [Recovered/Resolved]
  - Erythema [Recovered/Resolved]
  - Potentiating drug interaction [Unknown]
